FAERS Safety Report 7437825-4 (Version None)
Quarter: 2011Q2

REPORT INFORMATION
  Report Type: 
  Country: None (occurrence: None)
  Receive Date: 20110426
  Receipt Date: 20110422
  Transmission Date: 20111010
  Serious: Yes (Death)
  Sender: FDA-Public Use
  Company Number: A0738270A

PATIENT
  Age: 33 Year
  Sex: Male
  Weight: 115.9 kg

DRUGS (2)
  1. AVANDIA [Suspect]
     Dosage: 4MG TWICE PER DAY
     Route: 048
     Dates: start: 20040101, end: 20060712
  2. INSULIN [Concomitant]

REACTIONS (5)
  - CARDIOMEGALY [None]
  - MYOCARDIAL INFARCTION [None]
  - CARDIOMYOPATHY [None]
  - ARRHYTHMIA [None]
  - CARDIAC DISORDER [None]
